FAERS Safety Report 9272808 (Version 1)
Quarter: 2013Q2

REPORT INFORMATION
  Report Type: Spontaneous
  Country: US (occurrence: US)
  Receive Date: 20130506
  Receipt Date: 20130506
  Transmission Date: 20140414
  Serious: No
  Sender: FDA-Public Use
  Company Number: US-ASTRAZENECA-2012SE33013

PATIENT
  Age: 70 Year
  Sex: Female

DRUGS (4)
  1. PRILOSEC OTC [Suspect]
     Route: 048
     Dates: end: 20120514
  2. METOPROLOL [Concomitant]
     Dosage: UNKNOWN
  3. DIOVAN [Concomitant]
     Dosage: UNKNOWN
  4. BONIVA [Concomitant]
     Dosage: UNKNOWN

REACTIONS (10)
  - Abdominal distension [Recovered/Resolved]
  - Chills [Recovered/Resolved]
  - Pain [Recovered/Resolved]
  - Change of bowel habit [Recovering/Resolving]
  - Pyrexia [Recovered/Resolved]
  - Abdominal pain [Recovering/Resolving]
  - Flatulence [Recovering/Resolving]
  - Headache [Recovered/Resolved]
  - Diarrhoea [Recovering/Resolving]
  - Drug hypersensitivity [Recovering/Resolving]
